FAERS Safety Report 25139454 (Version 1)
Quarter: 2025Q1

REPORT INFORMATION
  Report Type: Spontaneous
  Country: SA (occurrence: SA)
  Receive Date: 20250331
  Receipt Date: 20250331
  Transmission Date: 20250409
  Serious: Yes (Life-Threatening, Hospitalization, Other)
  Sender: UNICHEM
  Company Number: SA-UNICHEM LABORATORIES LIMITED-UNI-2025-SA-001628

PATIENT

DRUGS (5)
  1. QUETIAPINE [Suspect]
     Active Substance: QUETIAPINE
     Indication: Sedation
  2. QUETIAPINE [Suspect]
     Active Substance: QUETIAPINE
     Dates: start: 20240129
  3. QUETIAPINE [Suspect]
     Active Substance: QUETIAPINE
  4. QUETIAPINE [Suspect]
     Active Substance: QUETIAPINE
     Dates: start: 20240315
  5. MEROPENEM [Concomitant]
     Active Substance: MEROPENEM
     Indication: Pseudomonas infection
     Route: 065

REACTIONS (1)
  - Hyponatraemia [Recovering/Resolving]
